FAERS Safety Report 5417538-0 (Version None)
Quarter: 2007Q3

REPORT INFORMATION
  Report Type: 
  Country: None (occurrence: None)
  Receive Date: 20070718
  Receipt Date: 20070417
  Transmission Date: 20080115
  Serious: Yes (Other)
  Sender: FDA-Public Use
  Company Number: 2007031355

PATIENT
  Sex: Male

DRUGS (2)
  1. CELEBREX [Suspect]
     Dosage: (DAILY), ORAL
     Route: 048
     Dates: start: 20030901
  2. BEXTRA [Suspect]
     Dosage: (DAILY), ORAL
     Route: 048
     Dates: start: 20021001, end: 20030901

REACTIONS (1)
  - MYOCARDIAL INFARCTION [None]
